FAERS Safety Report 22650590 (Version 1)
Quarter: 2023Q2

REPORT INFORMATION
  Report Type: Spontaneous
  Country: US (occurrence: None)
  Receive Date: 20230627
  Receipt Date: 20230627
  Transmission Date: 20230722
  Serious: Yes (Life-Threatening, Hospitalization)
  Sender: FDA-Public Use
  Company Number: None

PATIENT
  Age: 52 Year
  Sex: Female
  Weight: 90.3 kg

DRUGS (1)
  1. TECLISTAMAB [Suspect]
     Active Substance: TECLISTAMAB
     Indication: Plasma cell myeloma
     Route: 058
     Dates: start: 20230205

REACTIONS (7)
  - Aphasia [None]
  - Tremor [None]
  - Tremor [None]
  - Cytokine release syndrome [None]
  - Sedation complication [None]
  - Seizure [None]
  - Neurotoxicity [None]

NARRATIVE: CASE EVENT DATE: 20230207
